FAERS Safety Report 8426994-5 (Version None)
Quarter: 2012Q2

REPORT INFORMATION
  Report Type: 
  Country: None (occurrence: None)
  Receive Date: 20120611
  Receipt Date: 20120605
  Transmission Date: 20120825
  Serious: Yes (Hospitalization)
  Sender: FDA-Public Use
  Company Number: IT-ROCHE-1064842

PATIENT
  Sex: Male

DRUGS (11)
  1. TENORMIN [Concomitant]
  2. MABTHERA [Suspect]
     Indication: NON-HODGKIN'S LYMPHOMA
     Route: 041
     Dates: start: 20120314, end: 20120426
  3. DEXAMETHASONE SODIUM PHOSPHATE [Concomitant]
  4. LASIX [Concomitant]
  5. NAVOBAN [Concomitant]
     Route: 041
  6. RAMIPRIL [Concomitant]
  7. CISPLATIN [Suspect]
     Indication: NON-HODGKIN'S LYMPHOMA
     Route: 040
     Dates: start: 20120314, end: 20120426
  8. TRIMETON [Concomitant]
  9. LEVOTHYROXINE SODIUM [Concomitant]
  10. ASPIRIN [Concomitant]
  11. CYTARABINE [Suspect]
     Indication: NON-HODGKIN'S LYMPHOMA
     Route: 042
     Dates: start: 20120314, end: 20120426

REACTIONS (6)
  - PRURITUS [None]
  - THROMBOCYTOPENIA [None]
  - RENAL FAILURE [None]
  - ERYTHEMA [None]
  - ANAEMIA [None]
  - HYPOCALCAEMIA [None]
